FAERS Safety Report 4401936-8 (Version None)
Quarter: 2004Q3

REPORT INFORMATION
  Report Type: 
  Country: None (occurrence: None)
  Receive Date: 20040720
  Receipt Date: 20010926
  Transmission Date: 20050211
  Serious: Yes (Hospitalization)
  Sender: FDA-Public Use
  Company Number: 200120596FR

PATIENT
  Age: 60 Year
  Sex: Male
  Weight: 70 kg

DRUGS (2)
  1. ARAVA [Suspect]
     Indication: RHEUMATOID ARTHRITIS
     Route: 048
     Dates: start: 20010501, end: 20010907
  2. GYNERGENE CAFEINE [Concomitant]
     Indication: MIGRAINE

REACTIONS (8)
  - ALPHA 2 GLOBULIN DECREASED [None]
  - ASTHENIA [None]
  - DIARRHOEA [None]
  - MENINGEAL DISORDER [None]
  - MENINGITIS ASEPTIC [None]
  - PLATELET COUNT INCREASED [None]
  - PYREXIA [None]
  - RED BLOOD CELL SEDIMENTATION RATE INCREASED [None]
